FAERS Safety Report 9819383 (Version 1)
Quarter: 2014Q1

REPORT INFORMATION
  Report Type: Spontaneous
  Country: GB (occurrence: None)
  Receive Date: 20140113
  Receipt Date: 20140113
  Transmission Date: 20141002
  Serious: Yes (Hospitalization, Other)
  Sender: FDA-Public Use
  Company Number: AUR-APL-2014-00145

PATIENT
  Age: 70 Year
  Sex: Female

DRUGS (4)
  1. SERTRALINE [Suspect]
     Indication: ANXIETY
     Dosage: (50 MG), ORAL
     Route: 048
     Dates: start: 20131028, end: 20131102
  2. ZOSTAVAX [Suspect]
     Indication: PRODUCT USED FOR UNKNOWN INDICATION
     Route: 030
     Dates: start: 20131030, end: 20131030
  3. CLOPIDOGREL (CLOPIDOGREL) [Concomitant]
  4. LANSOPRAZOLE [Concomitant]

REACTIONS (2)
  - Hyponatraemia [None]
  - Fall [None]
